FAERS Safety Report 25596975 (Version 1)
Quarter: 2025Q3

REPORT INFORMATION
  Report Type: Spontaneous
  Country: CN (occurrence: CN)
  Receive Date: 20250723
  Receipt Date: 20250723
  Transmission Date: 20251020
  Serious: Yes (Other)
  Sender: TAKEDA
  Company Number: CN-TAKEDA-2025TUS065745

PATIENT
  Age: 39 Year
  Sex: Male
  Weight: 43 kg

DRUGS (1)
  1. ALBUMIN HUMAN [Suspect]
     Active Substance: ALBUMIN HUMAN
     Indication: Symptomatic treatment
     Dosage: 20 GRAM, QD
     Dates: start: 20250618, end: 20250618

REACTIONS (4)
  - Seizure [Recovering/Resolving]
  - Urinary incontinence [Recovering/Resolving]
  - Nuchal rigidity [Recovering/Resolving]
  - Vomiting [Unknown]

NARRATIVE: CASE EVENT DATE: 20250618
